FAERS Safety Report 6060359-9 (Version None)
Quarter: 2009Q1

REPORT INFORMATION
  Report Type: 
  Country: None (occurrence: None)
  Receive Date: 20090129
  Receipt Date: 20090129
  Transmission Date: 20090719
  Serious: Yes (Other)
  Sender: FDA-Public Use
  Company Number: None

PATIENT
  Age: 80 Year
  Sex: Female
  Weight: 50.8 kg

DRUGS (8)
  1. INTRALIPID 10% [Suspect]
     Dosage: 500 ML Q 48H IV
     Route: 042
  2. CHOLESTYRAMINE [Concomitant]
  3. INSULIN [Concomitant]
  4. LOVENOX [Concomitant]
  5. FLAGYL [Concomitant]
  6. ATIVAN [Concomitant]
  7. VANCOMYCIN [Concomitant]
  8. FOSINOPRIL SODIUM [Concomitant]

REACTIONS (1)
  - PANCREATITIS [None]
